FAERS Safety Report 9789823 (Version 2)
Quarter: 2013Q4

REPORT INFORMATION
  Report Type: Report from Study
  Country: GB (occurrence: GB)
  Receive Date: 20131231
  Receipt Date: 20131231
  Transmission Date: 20140711
  Serious: Yes (Death, Other)
  Sender: FDA-Public Use
  Company Number: GB-ROCHE-1143640

PATIENT
  Sex: 0

DRUGS (3)
  1. BEVACIZUMAB [Suspect]
     Indication: NON-SMALL CELL LUNG CANCER
     Dosage: ON DAY 1 OF EACH CYCLE, CHEMOTHERAPY WAS CONTINUED FOR A MAXIMUM OF SIX CYCLES AFTER WHICH PATIENTS
     Route: 065
  2. PACLITAXEL [Suspect]
     Indication: NON-SMALL CELL LUNG CANCER
     Dosage: /AUC 6 MG/ML X MIN Q3W ON DAY 1 OF EACH CYCLE
     Route: 065
  3. CARBOPLATIN [Suspect]
     Indication: NON-SMALL CELL LUNG CANCER
     Dosage: /AUC 6 MG/ML X MIN Q3W ON DAY 1 OF EACH CYCLE
     Route: 065

REACTIONS (8)
  - General physical health deterioration [Fatal]
  - Haemoptysis [Fatal]
  - Neutropenia [Unknown]
  - Hypertension [Unknown]
  - Fatigue [Unknown]
  - Decreased appetite [Unknown]
  - Dyspnoea [Unknown]
  - Arthralgia [Unknown]
